FAERS Safety Report 8131133-4 (Version None)
Quarter: 2012Q1

REPORT INFORMATION
  Report Type: 
  Country: None (occurrence: None)
  Receive Date: 20120209
  Receipt Date: 20120209
  Transmission Date: 20120608
  Serious: Yes (Hospitalization)
  Sender: FDA-Public Use
  Company Number: None

PATIENT
  Age: 57 Year
  Sex: Female

DRUGS (1)
  1. HUMIRA [Suspect]
     Indication: RHEUMATOID ARTHRITIS
     Dosage: 40 MG SUBQ QOW
     Route: 058
     Dates: start: 20120113, end: 20120127

REACTIONS (7)
  - CHEST DISCOMFORT [None]
  - HYPOAESTHESIA [None]
  - FEELING ABNORMAL [None]
  - PARAESTHESIA [None]
  - HEADACHE [None]
  - DYSPNOEA [None]
  - PYREXIA [None]
